FAERS Safety Report 15193844 (Version 1)
Quarter: 2018Q3

REPORT INFORMATION
  Report Type: Spontaneous
  Country: US (occurrence: US)
  Receive Date: 20180725
  Receipt Date: 20180725
  Transmission Date: 20181010
  Serious: No
  Sender: FDA-Public Use
  Company Number: US-009507513-1001USA01918

PATIENT
  Age: 35 Year
  Sex: Female

DRUGS (6)
  1. ZIDOVUDINE. [Suspect]
     Active Substance: ZIDOVUDINE
     Dosage: COURSE NUMBER 1, TOTAL DAILY DOSAGE 600
     Route: 048
     Dates: start: 2009
  2. TENOFOVIR DISOPROXIL FUMARATE. [Suspect]
     Active Substance: TENOFOVIR DISOPROXIL FUMARATE
     Dosage: COURSE NUMBER 1, TOTAL DAILY DOSE 300
     Route: 048
     Dates: start: 2008
  3. ZIDOVUDINE. [Suspect]
     Active Substance: ZIDOVUDINE
     Dosage: COURSE NUMBER 2, TOTAL DAILY DOSE 943
     Route: 042
     Dates: start: 2009
  4. RITONAVIR. [Suspect]
     Active Substance: RITONAVIR
     Dosage: COURSE NUMBER 1, TOTAL DAILY DOSE 200
     Route: 048
     Dates: start: 2008
  5. ISENTRESS [Suspect]
     Active Substance: RALTEGRAVIR POTASSIUM
     Dosage: COURSE NUMBER 1, TOTAL DAILY DOSE 800
     Route: 048
     Dates: start: 2009
  6. DARUNAVIR [Suspect]
     Active Substance: DARUNAVIR
     Dosage: COURSE NUMBER 1, TOTAL DAILY DOSE 1200
     Route: 048
     Dates: start: 2009

REACTIONS (2)
  - No adverse event [Unknown]
  - Maternal exposure during pregnancy [Recovered/Resolved]
